FAERS Safety Report 13824179 (Version 1)
Quarter: 2017Q3

REPORT INFORMATION
  Report Type: Spontaneous
  Country: US (occurrence: US)
  Receive Date: 20170802
  Receipt Date: 20170802
  Transmission Date: 20171127
  Serious: Yes (Death)
  Sender: FDA-Public Use
  Company Number: US-ASTELLAS-2017US029994

PATIENT
  Age: 84 Year
  Sex: Female
  Weight: 48 kg

DRUGS (2)
  1. TARCEVA [Suspect]
     Active Substance: ERLOTINIB HYDROCHLORIDE
     Indication: LUNG NEOPLASM MALIGNANT
     Route: 048
     Dates: start: 20131002
  2. TARCEVA [Suspect]
     Active Substance: ERLOTINIB HYDROCHLORIDE
     Route: 048

REACTIONS (3)
  - Death [Fatal]
  - Gastroenteritis viral [Unknown]
  - Malaise [Unknown]

NARRATIVE: CASE EVENT DATE: 20170723
